FAERS Safety Report 24569799 (Version 1)
Quarter: 2024Q4

REPORT INFORMATION
  Report Type: Spontaneous
  Country: US (occurrence: US)
  Receive Date: 20241031
  Receipt Date: 20241031
  Transmission Date: 20250114
  Serious: Yes (Hospitalization, Other)
  Sender: RECKITT BENCKISER
  Company Number: US-INDIVIOR US-INDV-157255-2024

PATIENT
  Sex: Female
  Weight: 51.9 kg

DRUGS (14)
  1. SUBOXONE [Suspect]
     Active Substance: BUPRENORPHINE HYDROCHLORIDE\NALOXONE HYDROCHLORIDE
     Indication: Drug use disorder
     Dosage: 8 MILLIGRAM, BID
     Route: 060
     Dates: start: 20190225
  2. ALCOHOL [Suspect]
     Active Substance: ALCOHOL
     Indication: Product used for unknown indication
     Dosage: UNK
     Route: 065
  3. CANNABIS SATIVA SUBSP. INDICA TOP [Suspect]
     Active Substance: CANNABIS SATIVA SUBSP. INDICA TOP
     Indication: Product used for unknown indication
     Dosage: UNK
     Route: 065
  4. HEROIN [Suspect]
     Active Substance: DIAMORPHINE
     Indication: Product used for unknown indication
  5. XANAX [Suspect]
     Active Substance: ALPRAZOLAM
     Indication: Product used for unknown indication
     Dosage: 1 BAT THREE TIMES PER WEEK
     Route: 065
  6. METHAMPHETAMINE [Suspect]
     Active Substance: METHAMPHETAMINE
     Indication: Product used for unknown indication
     Dosage: UNK
     Route: 065
  7. NICODERM CQ [Concomitant]
     Active Substance: NICOTINE
     Indication: Nicotine dependence
     Dosage: 14 MILLIGRAM, QD
     Route: 062
     Dates: start: 20190203
  8. NICODERM CQ [Concomitant]
     Active Substance: NICOTINE
     Dosage: 21 MILLIGRAM, QD
     Route: 062
     Dates: start: 20200220
  9. NICORETTE [Concomitant]
     Active Substance: NICOTINE
     Indication: Smoking cessation therapy
     Dosage: 4 MILLIGRAM, QH
     Route: 048
  10. PRILOSEC [Concomitant]
     Active Substance: OMEPRAZOLE MAGNESIUM
     Indication: Gastrooesophageal reflux disease
     Dosage: 20 MILLIGRAM, QD
     Route: 048
  11. ROZEREM [Concomitant]
     Active Substance: RAMELTEON
     Indication: Drug abuser
     Dosage: 8 MILLIGRAM, QD
     Route: 048
  12. SPIRIVA [Concomitant]
     Active Substance: TIOTROPIUM BROMIDE MONOHYDRATE
     Indication: Product used for unknown indication
     Dosage: 18 MICROGRAM, QD
  13. REMERON [Concomitant]
     Active Substance: MIRTAZAPINE
     Indication: Major depression
     Dosage: 30 MILLIGRAM, QD
     Route: 048
  14. CATAPRES CLONIDINE HYDROCHLORIDE [Concomitant]
     Indication: Drug withdrawal syndrome
     Dosage: 0.1 MILLIGRAM, TID
     Route: 048
     Dates: start: 20190410

REACTIONS (10)
  - Focal dyscognitive seizures [Recovered/Resolved]
  - Intentional self-injury [Recovered/Resolved]
  - Self-destructive behaviour [Unknown]
  - Arterial injury [Unknown]
  - Toxicity to various agents [Unknown]
  - Dental caries [Unknown]
  - Tooth erosion [Unknown]
  - Drug dependence [Unknown]
  - Inappropriate schedule of product administration [Unknown]
  - Drug withdrawal syndrome [Unknown]

NARRATIVE: CASE EVENT DATE: 20190101
